FAERS Safety Report 23288929 (Version 2)
Quarter: 2024Q1

REPORT INFORMATION
  Report Type: Report from Study
  Country: US (occurrence: US)
  Receive Date: 20231212
  Receipt Date: 20240125
  Transmission Date: 20240409
  Serious: Yes (Other)
  Sender: FDA-Public Use
  Company Number: US-SA-SAC20231207001331

PATIENT
  Age: 71 Year
  Sex: Female

DRUGS (1)
  1. DUPILUMAB [Suspect]
     Active Substance: DUPILUMAB
     Indication: Pemphigoid
     Dosage: 300 MG, QOW
     Route: 058

REACTIONS (8)
  - Suicidal ideation [Unknown]
  - Off label use [Unknown]
  - Stress [Unknown]
  - Rash macular [Not Recovered/Not Resolved]
  - Depressed mood [Unknown]
  - Crying [Unknown]
  - Anger [Unknown]
  - Rash [Unknown]
